FAERS Safety Report 24327707 (Version 1)
Quarter: 2024Q3

REPORT INFORMATION
  Report Type: Spontaneous
  Country: CN (occurrence: CN)
  Receive Date: 20240917
  Receipt Date: 20240917
  Transmission Date: 20241016
  Serious: Yes (Hospitalization, Other)
  Sender: PFIZER
  Company Number: CN-PFIZER INC-PV202400120931

PATIENT
  Age: 11 Year
  Sex: Female
  Weight: 30.5 kg

DRUGS (5)
  1. CYTARABINE [Suspect]
     Active Substance: CYTARABINE
     Indication: Acute lymphocytic leukaemia
     Dosage: 2.17 G, 2X/DAY (EVERY 12 HOURS)
     Route: 041
     Dates: start: 20240803, end: 20240805
  2. PEGASPARGASE [Suspect]
     Active Substance: PEGASPARGASE
     Indication: Acute lymphocytic leukaemia
     Dosage: 2200 IU, 1X/DAY
     Route: 030
     Dates: start: 20240805, end: 20240805
  3. VINCRISTINE SULFATE [Suspect]
     Active Substance: VINCRISTINE SULFATE
     Indication: Acute lymphocytic leukaemia
     Dosage: 1.63 MG, 1X/7DAYS
     Route: 042
     Dates: start: 20240803, end: 20240823
  4. SODIUM CHLORIDE [Concomitant]
     Active Substance: SODIUM CHLORIDE
     Indication: Vehicle solution use
     Dosage: 250 ML, 2X/DAY
     Route: 041
     Dates: start: 20240803, end: 20240805
  5. SODIUM CHLORIDE [Concomitant]
     Active Substance: SODIUM CHLORIDE
     Indication: Vehicle solution use
     Dosage: 20 ML, 1X/DAY
     Route: 042
     Dates: start: 20240803, end: 20240803

REACTIONS (9)
  - Myelosuppression [Recovering/Resolving]
  - Pyrexia [Recovered/Resolved]
  - Toothache [Recovering/Resolving]
  - Oral pain [Unknown]
  - Oral discharge [Unknown]
  - Fungal infection [Unknown]
  - Pain in extremity [Recovered/Resolved]
  - Gingival swelling [Unknown]
  - Gingival erythema [Unknown]

NARRATIVE: CASE EVENT DATE: 20240801
